FAERS Safety Report 8195407-3 (Version None)
Quarter: 2012Q1

REPORT INFORMATION
  Report Type: 
  Country: None (occurrence: None)
  Receive Date: 20120308
  Receipt Date: 20120302
  Transmission Date: 20120608
  Serious: Yes (Other)
  Sender: FDA-Public Use
  Company Number: PHHY2012GR019834

PATIENT
  Sex: Female

DRUGS (3)
  1. ZOLEDRONIC [Suspect]
     Indication: BONE DENSITY DECREASED
     Dosage: 5 MG, UNK
     Route: 042
  2. CALCIUM [Concomitant]
     Dosage: 1000 MG/DAY
  3. VITAMIN D [Concomitant]
     Dosage: 800 IU/DAY

REACTIONS (5)
  - ERYTHEMA [None]
  - BLOOD PHOSPHORUS DECREASED [None]
  - ACUTE PHASE REACTION [None]
  - BLOOD 25-HYDROXYCHOLECALCIFEROL DECREASED [None]
  - BLOOD CALCIUM DECREASED [None]
